FAERS Safety Report 9522625 (Version 2)
Quarter: 2013Q3

REPORT INFORMATION
  Report Type: Spontaneous
  Country: FR (occurrence: FR)
  Receive Date: 20130913
  Receipt Date: 20130926
  Transmission Date: 20140515
  Serious: Yes (Hospitalization, Other)
  Sender: FDA-Public Use
  Company Number: FR-PFIZER INC-2013259514

PATIENT
  Age: 83 Year
  Sex: Female

DRUGS (10)
  1. TAHOR [Suspect]
     Indication: DYSLIPIDAEMIA
     Dosage: 40 MG, 2X/DAY
     Route: 048
     Dates: start: 20130702, end: 20130709
  2. AUGMENTIN [Suspect]
     Indication: URINARY TRACT INFECTION
     Dosage: 1 G/ 200 MG, 3X/DAY
     Route: 042
     Dates: start: 20130706, end: 20130710
  3. DAFALGAN CODEINE [Concomitant]
     Indication: HYPERTENSION
     Dosage: UNK
     Route: 048
     Dates: start: 20130704
  4. AMLODIPINE [Concomitant]
     Indication: HYPERTENSION
     Dosage: 10 MG, 1X/DAY
     Route: 048
     Dates: start: 20130702, end: 20130704
  5. DIFFU K [Concomitant]
     Dosage: 3 DF, 1X/DAY
     Route: 048
     Dates: start: 20130708, end: 20130715
  6. EUPRESSYL [Concomitant]
     Indication: HYPERTENSION
     Dosage: 60 MG, 2X/DAY
     Route: 048
     Dates: start: 20130702, end: 20130704
  7. FUNGIZONE [Concomitant]
     Dosage: 5 ML, 1X/DAY
     Route: 048
     Dates: start: 20130703, end: 20130718
  8. KARDEGIC [Concomitant]
     Dosage: 160 MG, 1X/DAY
     Route: 048
     Dates: start: 20130702
  9. LASILIX [Concomitant]
     Indication: HYPERTENSION
     Dosage: 40 MG, 1X/DAY
     Route: 048
     Dates: start: 20130702
  10. SERESTA [Concomitant]
     Dosage: AS NEEDED
     Route: 048

REACTIONS (13)
  - Hepatitis acute [Recovered/Resolved]
  - Cardio-respiratory arrest [Recovered/Resolved]
  - Choking [Recovered/Resolved]
  - Oral fungal infection [Unknown]
  - Fungal infection [Unknown]
  - Cholelithiasis [Unknown]
  - Adrenal disorder [Unknown]
  - Osteoporosis [Unknown]
  - Urosepsis [Unknown]
  - Constipation [Unknown]
  - Cerebral atrophy [Unknown]
  - Cognitive disorder [Unknown]
  - Blood albumin decreased [Unknown]
